FAERS Safety Report 10580503 (Version 1)
Quarter: 2014Q4

REPORT INFORMATION
  Report Type: Spontaneous
  Country: US (occurrence: US)
  Receive Date: 20141113
  Receipt Date: 20141113
  Transmission Date: 20150529
  Serious: Yes (Hospitalization, Other)
  Sender: FDA-Public Use
  Company Number: US-AMGEN-USASP2014086735

PATIENT
  Age: 59 Year
  Sex: Female

DRUGS (1)
  1. ENBREL [Suspect]
     Active Substance: ETANERCEPT
     Indication: PSORIATIC ARTHROPATHY
     Dosage: 50 MG, QWK
     Route: 065
     Dates: start: 20120719

REACTIONS (14)
  - Arthralgia [Not Recovered/Not Resolved]
  - Memory impairment [Not Recovered/Not Resolved]
  - Chest pain [Recovered/Resolved]
  - Lethargy [Not Recovered/Not Resolved]
  - Back disorder [Recovered/Resolved]
  - White blood cell count increased [Recovered/Resolved]
  - Smear cervix abnormal [Unknown]
  - Osteoporosis [Not Recovered/Not Resolved]
  - Sensory disturbance [Recovered/Resolved]
  - Tooth disorder [Not Recovered/Not Resolved]
  - Dental caries [Not Recovered/Not Resolved]
  - Back pain [Not Recovered/Not Resolved]
  - Increased tendency to bruise [Not Recovered/Not Resolved]
  - Vitiligo [Not Recovered/Not Resolved]
